FAERS Safety Report 5657490-6 (Version None)
Quarter: 2008Q1

REPORT INFORMATION
  Report Type: 
  Country: None (occurrence: None)
  Receive Date: 20080310
  Receipt Date: 20080303
  Transmission Date: 20080703
  Serious: Yes (Hospitalization, Disabling)
  Sender: FDA-Public Use
  Company Number: US-GILEAD-2008-0015549

PATIENT
  Weight: 70.824 kg

DRUGS (5)
  1. LETAIRIS [Suspect]
     Indication: PULMONARY HYPERTENSION
     Route: 048
     Dates: start: 20071206
  2. LETAIRIS [Suspect]
     Route: 048
     Dates: start: 20080107, end: 20080108
  3. PROPOFOL [Concomitant]
     Dosage: 10 MCG/KG/MIN
     Route: 042
     Dates: start: 20080108
  4. REVATIO [Concomitant]
     Route: 048
     Dates: start: 20080107, end: 20080108
  5. REMODULIN [Concomitant]
     Dosage: 52.5 NG/KG/MIN
     Route: 058
     Dates: start: 20080107, end: 20080108

REACTIONS (4)
  - CARDIAC FAILURE CONGESTIVE [None]
  - IRON DEFICIENCY ANAEMIA [None]
  - RENAL TRANSPLANT [None]
  - WOUND [None]
